FAERS Safety Report 13125919 (Version 1)
Quarter: 2017Q1

REPORT INFORMATION
  Report Type: Spontaneous
  Country: JP (occurrence: JP)
  Receive Date: 20170118
  Receipt Date: 20170118
  Transmission Date: 20170428
  Serious: Yes (Other)
  Sender: FDA-Public Use
  Company Number: JP-JNJFOC-20170112132

PATIENT
  Age: 66 Year
  Sex: Female

DRUGS (1)
  1. RISPERDAL [Suspect]
     Active Substance: RISPERIDONE
     Indication: PRODUCT USED FOR UNKNOWN INDICATION
     Route: 048
     Dates: start: 201302, end: 201401

REACTIONS (5)
  - Dystonia [Unknown]
  - Dyslalia [Unknown]
  - Movement disorder [Unknown]
  - Mastication disorder [Unknown]
  - Dysphagia [Unknown]
